FAERS Safety Report 11156674 (Version 1)
Quarter: 2015Q2

REPORT INFORMATION
  Report Type: Spontaneous
  Country: None (occurrence: None)
  Receive Date: 20150601
  Receipt Date: 20150601
  Transmission Date: 20150821
  Serious: No
  Sender: FDA-Public Use
  Company Number: None

PATIENT
  Age: 64 Year
  Sex: Female
  Weight: 61.24 kg

DRUGS (1)
  1. MELOXICAM 15MG [Suspect]
     Active Substance: MELOXICAM
     Indication: SCIATICA
     Dosage: 1 PILL  ONCE DAILY TAKEN BY MOUTH
     Route: 048
     Dates: start: 20150331, end: 20150531

REACTIONS (7)
  - Skin lesion [None]
  - Lip swelling [None]
  - Eye swelling [None]
  - Pruritus [None]
  - Skin exfoliation [None]
  - Swelling face [None]
  - Swollen tongue [None]

NARRATIVE: CASE EVENT DATE: 20150515
